FAERS Safety Report 4794824-9 (Version None)
Quarter: 2005Q3

REPORT INFORMATION
  Report Type: 
  Country: None (occurrence: None)
  Receive Date: 20050914
  Receipt Date: 20041008
  Transmission Date: 20060218
  Serious: Yes (Death)
  Sender: FDA-Public Use
  Company Number: 163-20785-04100233

PATIENT
  Age: 70 Year
  Sex: Male
  Weight: 72.5755 kg

DRUGS (9)
  1. THALOMID [Suspect]
     Indication: MYELOPROLIFERATIVE DISORDER
     Dosage: 200 MG, DAILY, ORAL
     Route: 048
     Dates: start: 20040701, end: 20040901
  2. NEUPOGEN [Concomitant]
  3. DESFERAL (DEFEROXAMINE MESILATE) [Concomitant]
  4. ALLEGRA [Concomitant]
  5. PROTONIX [Concomitant]
  6. ACETYLSALICYLIC ACID SRT [Concomitant]
  7. HUMALOG [Concomitant]
  8. COUMADIN [Concomitant]
  9. BLOOD TRANSFUSION, AUXILIARY PRODUCTS [Concomitant]

REACTIONS (8)
  - DEATH [None]
  - DISEASE PROGRESSION [None]
  - FATIGUE [None]
  - LEUKOPENIA [None]
  - MUSCLE SPASMS [None]
  - NEUTROPENIA [None]
  - PANCYTOPENIA [None]
  - PLATELET COUNT DECREASED [None]
